FAERS Safety Report 8520815 (Version 2)
Quarter: 2012Q4

REPORT INFORMATION
  Report Type: 
  Country: US (occurrence: US)
  Receive Date: 20120419
  Receipt Date: 20121120
  Transmission Date: 20130627
  Serious: No
  Sender: FDA-Public Use
  Company Number: US-ASTRAZENECA-2011SE52957

PATIENT
  Age: 48 Year
  Sex: Female
  Weight: 90.7 kg

DRUGS (6)
  1. NEXIUM [Suspect]
     Indication: GASTROOESOPHAGEAL REFLUX DISEASE
     Route: 048
  2. SEROQUEL [Suspect]
     Indication: BIPOLAR DISORDER
     Route: 048
     Dates: start: 2006
  3. SEROQUEL [Suspect]
     Indication: BIPOLAR DISORDER
     Route: 048
  4. PRILOSEC OTC [Concomitant]
     Indication: GASTROOESOPHAGEAL REFLUX DISEASE
  5. TEGRETOL [Concomitant]
     Indication: BIPOLAR DISORDER
  6. LITHIUM [Concomitant]
     Indication: BIPOLAR DISORDER

REACTIONS (10)
  - Throat irritation [Unknown]
  - Throat tightness [Unknown]
  - Sensation of foreign body [Unknown]
  - Gastrooesophageal reflux disease [Unknown]
  - Oropharyngeal blistering [Unknown]
  - Aphagia [Unknown]
  - Diarrhoea [Unknown]
  - Weight increased [Unknown]
  - Dizziness [Unknown]
  - Intentional drug misuse [Unknown]
